FAERS Safety Report 15468907 (Version 2)
Quarter: 2018Q4

REPORT INFORMATION
  Report Type: Report from Study
  Country: JP (occurrence: JP)
  Receive Date: 20181005
  Receipt Date: 20181224
  Transmission Date: 20190205
  Serious: Yes (Hospitalization)
  Sender: FDA-Public Use
  Company Number: JP-ACTELION-A-CH2018-179566

PATIENT
  Age: 34 Year
  Sex: Male

DRUGS (11)
  1. FERROUS CITRATE NA [Concomitant]
     Active Substance: SODIUM FERROUS CITRATE
  2. PRAVASTATIN SODIUM. [Concomitant]
     Active Substance: PRAVASTATIN SODIUM
  3. BAYASPIRIN [Concomitant]
     Active Substance: ASPIRIN
  4. ALLOPURINOL. [Concomitant]
     Active Substance: ALLOPURINOL
  5. TEPRENONE [Concomitant]
     Active Substance: TEPRENONE
  6. OPSUMIT [Suspect]
     Active Substance: MACITENTAN
     Dosage: 10 MG, QD
     Route: 048
     Dates: start: 20180720
  7. ADCIRCA [Concomitant]
     Active Substance: TADALAFIL
  8. OPSUMIT [Suspect]
     Active Substance: MACITENTAN
     Indication: PULMONARY ARTERIAL HYPERTENSION
     Dosage: 5 MG, QD
     Route: 048
     Dates: start: 20160624, end: 20180719
  9. BENZBROMARONE [Concomitant]
     Active Substance: BENZBROMARONE
  10. ARTIST [Concomitant]
     Active Substance: CARVEDILOL
  11. OXYGEN. [Concomitant]
     Active Substance: OXYGEN

REACTIONS (6)
  - Decreased appetite [Recovered/Resolved]
  - Liver abscess [Recovered/Resolved]
  - Nausea [Recovered/Resolved]
  - C-reactive protein increased [Recovered/Resolved]
  - Erythema multiforme [Recovered/Resolved]
  - Pleural effusion [Recovered/Resolved]

NARRATIVE: CASE EVENT DATE: 20180416
